FAERS Safety Report 8334343-6 (Version None)
Quarter: 2012Q1

REPORT INFORMATION
  Report Type: 
  Country: None (occurrence: None)
  Receive Date: 20120329
  Receipt Date: 20110505
  Transmission Date: 20120608
  Serious: Yes (Hospitalization)
  Sender: FDA-Public Use
  Company Number: WAES 1105USA01193

PATIENT
  Sex: Female

DRUGS (2)
  1. FOSAPREPITANT DIMEGLUMINE [Suspect]
     Indication: PROPHYLAXIS
     Dosage: 150 MG/1X/IV
     Route: 042
     Dates: start: 20110414, end: 20110414
  2. FOSAPREPITANT DIMEGLUMINE [Suspect]
     Indication: CHEMOTHERAPY
     Dosage: 150 MG/1X/IV
     Route: 042
     Dates: start: 20110414, end: 20110414

REACTIONS (2)
  - HEART RATE DECREASED [None]
  - BLOOD PRESSURE INCREASED [None]
